FAERS Safety Report 6542168-7 (Version None)
Quarter: 2010Q1

REPORT INFORMATION
  Report Type: 
  Country: None (occurrence: None)
  Receive Date: 20100119
  Receipt Date: 20100113
  Transmission Date: 20100710
  Serious: Yes (Death)
  Sender: FDA-Public Use
  Company Number: KR-ASTRAZENECA-2009SE28723

PATIENT
  Age: 38 Year
  Sex: Male
  Weight: 74 kg

DRUGS (2)
  1. DIPRIVAN [Suspect]
     Dosage: CONTINOUS INFUSION VIA FLUID AGENT
     Route: 042
  2. RINGER'S LACTATE SOLUTION [Concomitant]

REACTIONS (3)
  - APNOEA [None]
  - DRUG TOXICITY [None]
  - INTENTIONAL DRUG MISUSE [None]
